FAERS Safety Report 7911364-6 (Version None)
Quarter: 2011Q4

REPORT INFORMATION
  Report Type: 
  Country: None (occurrence: None)
  Receive Date: 20111114
  Receipt Date: 20111109
  Transmission Date: 20120403
  Serious: Yes (Hospitalization, Other)
  Sender: FDA-Public Use
  Company Number: US-BAYER-2011-085214

PATIENT
  Age: 50 Year
  Sex: Male

DRUGS (9)
  1. SORAFENIB (RAF KINASE INHIBITOR) [Suspect]
     Dosage: 200MG
     Dates: start: 20111010, end: 20111011
  2. SORAFENIB (RAF KINASE INHIBITOR) [Suspect]
     Indication: HEPATIC NEOPLASM MALIGNANT
     Dosage: 400 MG, BID
     Route: 048
     Dates: start: 20110909, end: 20110911
  3. SORAFENIB (RAF KINASE INHIBITOR) [Suspect]
     Dosage: 400 MG, BID
     Route: 048
     Dates: end: 20111006
  4. SORAFENIB (RAF KINASE INHIBITOR) [Suspect]
     Dosage: 1 IN AM AND 1 IN PM
     Route: 048
     Dates: start: 20111011
  5. OXYCONTIN [Concomitant]
     Indication: PAIN
  6. MORPHINE [Concomitant]
     Dosage: 30 MG, BID
     Route: 048
  7. MORPHINE [Concomitant]
  8. SORAFENIB (RAF KINASE INHIBITOR) [Suspect]
     Dosage: 400 MG, BID
     Route: 048
     Dates: start: 20110918, end: 20110924
  9. OXYCODONE HCL [Concomitant]
     Dosage: 5 MG, PRN
     Route: 048

REACTIONS (21)
  - FEAR [None]
  - ANXIETY [None]
  - OROPHARYNGEAL PAIN [None]
  - DIARRHOEA [None]
  - BLISTER [None]
  - PANIC REACTION [None]
  - ABASIA [None]
  - FATIGUE [None]
  - NERVOUSNESS [None]
  - MUSCLE STRAIN [None]
  - VOMITING [None]
  - APHAGIA [None]
  - HEADACHE [None]
  - TONGUE BLISTERING [None]
  - ABDOMINAL PAIN [None]
  - PYREXIA [None]
  - ORAL PAIN [None]
  - CHILLS [None]
  - DYSURIA [None]
  - HEPATIC PAIN [None]
  - MALAISE [None]
